FAERS Safety Report 20660605 (Version 1)
Quarter: 2022Q1

REPORT INFORMATION
  Report Type: Other
  Country: ZA (occurrence: None)
  Receive Date: 20220331
  Receipt Date: 20220331
  Transmission Date: 20220423
  Serious: Yes (Other)
  Sender: FDA-Public Use
  Company Number: ZA-ROCHE-3062614

PATIENT
  Sex: Female

DRUGS (1)
  1. MABTHERA [Suspect]
     Active Substance: RITUXIMAB
     Indication: Rheumatoid arthritis
     Dosage: REPEATED AFTER 6 MONTH
     Route: 041
     Dates: start: 20210831

REACTIONS (1)
  - Anaphylactic reaction [Unknown]
